FAERS Safety Report 4280651-8 (Version None)
Quarter: 2004Q1

REPORT INFORMATION
  Report Type: 
  Country: None (occurrence: None)
  Receive Date: 20040123
  Receipt Date: 20040113
  Transmission Date: 20041129
  Serious: Yes (Death)
  Sender: FDA-Public Use
  Company Number: 2004194388JP

PATIENT
  Age: 74 Year
  Sex: Male
  Weight: 63 kg

DRUGS (7)
  1. DOXORUBICIN HCL [Suspect]
     Indication: LYMPHOMA
     Dosage: 60 MG, QD, IV
     Route: 042
     Dates: start: 20031030, end: 20031030
  2. CYCLOPHOSPHAMIDE [Suspect]
     Indication: LYMPHOMA
     Dosage: 100 MG, QD, IV
     Route: 042
     Dates: start: 20031030, end: 20031030
  3. RITUXIMAB (RITUXIMAB) [Suspect]
     Indication: LYMPHOMA
     Dosage: 500 MG, QD, IV
     Route: 042
     Dates: start: 20031028, end: 20031028
  4. ONCOVIN [Suspect]
     Indication: LYMPHOMA
     Dosage: 1.8 MG, QD, IV
     Route: 042
     Dates: start: 20031030, end: 20031030
  5. CYTOTEC [Suspect]
     Dosage: QD, ORAL
     Route: 048
     Dates: start: 20031104, end: 20031108
  6. LORCAM [Concomitant]
  7. DICLOFENAC SODIUM [Concomitant]

REACTIONS (7)
  - CARDIAC ARREST [None]
  - DEPRESSED LEVEL OF CONSCIOUSNESS [None]
  - DISSEMINATED INTRAVASCULAR COAGULATION [None]
  - ESCHERICHIA SEPSIS [None]
  - LEUKOPENIA [None]
  - RESPIRATORY DISORDER [None]
  - SEPTIC SHOCK [None]
